FAERS Safety Report 8058477-9 (Version None)
Quarter: 2012Q1

REPORT INFORMATION
  Report Type: 
  Country: None (occurrence: None)
  Receive Date: 20120119
  Receipt Date: 20120119
  Transmission Date: 20120608
  Serious: Yes (Disabling, Other)
  Sender: FDA-Public Use
  Company Number: None

PATIENT
  Age: 65 Year
  Sex: Female
  Weight: 113.3993 kg

DRUGS (1)
  1. LIPITOR [Suspect]
     Indication: BLOOD CHOLESTEROL
     Dosage: 40MG. 1X DAY
     Dates: start: 20111004, end: 20111216

REACTIONS (9)
  - CONSTIPATION [None]
  - ARTHRALGIA [None]
  - FLATULENCE [None]
  - WHEEZING [None]
  - PAIN [None]
  - HYPERHIDROSIS [None]
  - MUSCLE SPASMS [None]
  - GAIT DISTURBANCE [None]
  - BACK PAIN [None]
